FAERS Safety Report 13188458 (Version 2)
Quarter: 2017Q1

REPORT INFORMATION
  Report Type: Spontaneous
  Country: US (occurrence: US)
  Receive Date: 20170206
  Receipt Date: 20170228
  Transmission Date: 20170428
  Serious: Yes (Other)
  Sender: FDA-Public Use
  Company Number: US-BAYER-2017-021057

PATIENT
  Age: 20 Year
  Sex: Female
  Weight: 56.68 kg

DRUGS (1)
  1. SKYLA [Suspect]
     Active Substance: LEVONORGESTREL
     Indication: CONTRACEPTION
     Dosage: 14 MCG/24HR, CONT
     Route: 015
     Dates: start: 201405, end: 20170201

REACTIONS (3)
  - Abdominal pain [Unknown]
  - Ectopic pregnancy with contraceptive device [Unknown]
  - Drug ineffective [None]

NARRATIVE: CASE EVENT DATE: 20170131
